FAERS Safety Report 9593007 (Version 3)
Quarter: 2013Q4

REPORT INFORMATION
  Report Type: Spontaneous
  Country: DE (occurrence: DE)
  Receive Date: 20131004
  Receipt Date: 20131017
  Transmission Date: 20140711
  Serious: Yes (Life-Threatening, Hospitalization, Disabling, Other)
  Sender: FDA-Public Use
  Company Number: DE-JNJFOC-20130804268

PATIENT
  Age: 77 Year
  Sex: Male
  Weight: 92 kg

DRUGS (7)
  1. XARELTO [Suspect]
     Indication: THROMBOSIS PROPHYLAXIS
     Route: 048
     Dates: start: 20130413, end: 20130421
  2. XARELTO [Suspect]
     Indication: PULMONARY EMBOLISM
     Route: 048
     Dates: start: 20130413, end: 20130421
  3. CLARITHROMYCIN [Interacting]
     Indication: PRODUCT USED FOR UNKNOWN INDICATION
     Route: 048
     Dates: start: 20130415, end: 20130420
  4. PANTOPRAZOLE [Interacting]
     Indication: PRODUCT USED FOR UNKNOWN INDICATION
     Route: 048
     Dates: start: 20130415, end: 20130420
  5. SIMVASTATIN [Concomitant]
     Route: 048
  6. BISOPROLOL [Concomitant]
     Route: 048
  7. AMOXICILLIN [Concomitant]
     Route: 048
     Dates: start: 20130415, end: 20130420

REACTIONS (3)
  - Cerebral haemorrhage [Recovered/Resolved with Sequelae]
  - Pituitary tumour benign [Recovered/Resolved with Sequelae]
  - Drug interaction [Unknown]
